FAERS Safety Report 8780296 (Version 1)
Quarter: 2012Q4

REPORT INFORMATION
  Report Type: Spontaneous
  Country: US (occurrence: None)
  Receive Date: 20120905
  Receipt Date: 20120905
  Transmission Date: 20130627
  Serious: No
  Sender: FDA-Public Use
  Company Number: None

PATIENT
  Age: 64 Year
  Sex: Female
  Weight: 101.15 kg

DRUGS (1)
  1. CIPROFLOXACIN [Suspect]

REACTIONS (4)
  - Migraine [None]
  - Hypoaesthesia [None]
  - Arthralgia [None]
  - Diarrhoea [None]
